FAERS Safety Report 4299969-8 (Version None)
Quarter: 2004Q1

REPORT INFORMATION
  Report Type: 
  Country: None (occurrence: None)
  Receive Date: 20040206
  Receipt Date: 20040206
  Transmission Date: 20041129
  Serious: Yes (Hospitalization)
  Sender: FDA-Public Use
  Company Number: None

PATIENT
  Sex: Male

DRUGS (1)
  1. RETEPLASE (RETAVASE) CENTOCOR INC [Suspect]
     Indication: MYOCARDIAL INFARCTION
     Dosage: 10 U IV OVER 2 MIN, 30 MINUTES LATER 10 4 IV OVER 2 MIN
     Route: 042

REACTIONS (1)
  - HAEMOPTYSIS [None]
